FAERS Safety Report 14923731 (Version 2)
Quarter: 2018Q2

REPORT INFORMATION
  Report Type: Spontaneous
  Country: JP (occurrence: JP)
  Receive Date: 20180522
  Receipt Date: 20180614
  Transmission Date: 20180711
  Serious: Yes (Other)
  Sender: FDA-Public Use
  Company Number: JP-SA-2018SA138682

PATIENT
  Age: 71 Year
  Sex: Male

DRUGS (5)
  1. JEVTANA [Suspect]
     Active Substance: CABAZITAXEL
     Indication: HORMONE-REFRACTORY PROSTATE CANCER
     Dosage: 40 MG, Q3W
     Route: 041
     Dates: start: 20171108
  2. JEVTANA [Suspect]
     Active Substance: CABAZITAXEL
     Dosage: 33 MG, Q3W
     Route: 041
  3. JEVTANA [Suspect]
     Active Substance: CABAZITAXEL
     Dosage: 30 MG, Q3W
     Route: 041
     Dates: end: 20180412
  4. JEVTANA [Suspect]
     Active Substance: CABAZITAXEL
     Dosage: 36 MG, Q3W
     Route: 041
  5. PREDNISOLONE. [Concomitant]
     Active Substance: PREDNISOLONE
     Indication: PRODUCT USED FOR UNKNOWN INDICATION
     Dosage: 5 MG, QD
     Route: 065
     Dates: start: 20171108

REACTIONS (1)
  - Renal haemorrhage [Recovered/Resolved]

NARRATIVE: CASE EVENT DATE: 20180330
